FAERS Safety Report 8618682 (Version 3)
Quarter: 2012Q4

REPORT INFORMATION
  Report Type: 
  Country: US (occurrence: US)
  Receive Date: 20120618
  Receipt Date: 20121123
  Transmission Date: 20130627
  Serious: No
  Sender: FDA-Public Use
  Company Number: US-PFIZER INC-2012142073

PATIENT
  Age: 71 Year
  Sex: Female
  Weight: 63.49 kg

DRUGS (6)
  1. LYRICA [Suspect]
     Indication: NERVE DAMAGE
     Dosage: 50 mg, daily
     Dates: start: 2011
  2. LYRICA [Suspect]
     Dosage: 100 mg, 3x/day
  3. PROPANOLOL HCL [Suspect]
     Indication: FAMILIAL TREMOR
     Dosage: 80 mg, daily
  4. EPITOL [Suspect]
     Indication: NERVE DAMAGE
     Dosage: UNK
     Dates: start: 201107, end: 2011
  5. PRIMIDONE [Suspect]
     Indication: NERVE DAMAGE
     Dosage: UNK
     Dates: start: 2008
  6. PRIMIDONE [Suspect]
     Indication: FAMILIAL TREMOR

REACTIONS (10)
  - Drug ineffective [Unknown]
  - Rash generalised [Recovered/Resolved]
  - Balance disorder [Unknown]
  - Heart rate increased [Unknown]
  - Palpitations [Unknown]
  - Facial neuralgia [Not Recovered/Not Resolved]
  - Facial pain [Unknown]
  - Mastication disorder [Unknown]
  - Speech disorder [Unknown]
  - Dizziness [Unknown]
